FAERS Safety Report 9045717 (Version 1)
Quarter: 2013Q1

REPORT INFORMATION
  Report Type: Report from Study
  Country: US (occurrence: US)
  Receive Date: 20130131
  Receipt Date: 20130131
  Transmission Date: 20140127
  Serious: No
  Sender: FDA-Public Use
  Company Number: US-ABBOTT-12P-163-0990781-00

PATIENT
  Age: 24 Year
  Sex: Female

DRUGS (6)
  1. HUMIRA [Suspect]
     Indication: CROHN^S DISEASE
     Dates: start: 20120914, end: 20120914
  2. HUMIRA [Suspect]
     Dates: start: 20120928, end: 20120928
  3. HUMIRA [Suspect]
     Dates: start: 20121013
  4. PENTASA [Concomitant]
     Indication: CROHN^S DISEASE
     Dosage: TABLETS TWICE DAILY
  5. IMURAN [Concomitant]
     Indication: CROHN^S DISEASE
     Dosage: 5 TABLETS DAILY
  6. ADDERALL [Concomitant]
     Indication: ATTENTION DEFICIT/HYPERACTIVITY DISORDER
     Dosage: 20MG IN THE MORNING AND 5MG IN THE PM

REACTIONS (8)
  - Fatigue [Not Recovered/Not Resolved]
  - Myalgia [Not Recovered/Not Resolved]
  - Oropharyngeal pain [Not Recovered/Not Resolved]
  - Dyspnoea [Not Recovered/Not Resolved]
  - Injection site pain [Not Recovered/Not Resolved]
  - Throat irritation [Not Recovered/Not Resolved]
  - Dry throat [Not Recovered/Not Resolved]
  - Hypersensitivity [Not Recovered/Not Resolved]
